FAERS Safety Report 6011495-4 (Version None)
Quarter: 2008Q4

REPORT INFORMATION
  Report Type: 
  Country: None (occurrence: None)
  Receive Date: 20081218
  Receipt Date: 19970429
  Transmission Date: 20090506
  Serious: Yes (Death, Hospitalization)
  Sender: FDA-Public Use
  Company Number: DE-ROCHE-80717

PATIENT
  Sex: Female

DRUGS (6)
  1. VESANOID [Suspect]
     Route: 048
     Dates: start: 19970424, end: 19970426
  2. VESANOID [Suspect]
     Route: 048
     Dates: start: 19970423, end: 19970423
  3. ACID TRANEXAMIC [Concomitant]
     Indication: PROPHYLAXIS
  4. FACTOR XIII [Concomitant]
     Indication: PROPHYLAXIS
  5. FIBRINOGEN [Concomitant]
     Indication: PROPHYLAXIS
  6. THROMBOCYTES [Concomitant]
     Indication: PROPHYLAXIS

REACTIONS (5)
  - BRAIN OEDEMA [None]
  - CONVULSION [None]
  - DEATH [None]
  - PNEUMONIA [None]
  - RESPIRATORY FAILURE [None]
